FAERS Safety Report 15516457 (Version 3)
Quarter: 2019Q1

REPORT INFORMATION
  Report Type: Spontaneous
  Country: PL (occurrence: PL)
  Receive Date: 20181017
  Receipt Date: 20190117
  Transmission Date: 20190417
  Serious: Yes (Life-Threatening, Hospitalization, Disabling, Other)
  Sender: FDA-Public Use
  Company Number: PL-PURDUE PHARMA-GBR-2018-0060479

PATIENT
  Age: 78 Year
  Sex: Male

DRUGS (4)
  1. NON-PMN THEOPHYLLINE [Suspect]
     Active Substance: THEOPHYLLINE ANHYDROUS
     Indication: SUICIDE ATTEMPT
     Dosage: 150 MG (4.5 G (30 X 150 MG))
     Route: 048
  2. DIGOXIN. [Suspect]
     Active Substance: DIGOXIN
     Dosage: 7.5 MG (30 X 0.25 MG)
     Route: 048
  3. DIGOXIN. [Suspect]
     Active Substance: DIGOXIN
     Indication: SUICIDE ATTEMPT
     Dosage: 0.25 MG (7.5 MG (30 X 0.25 MG))
     Route: 048
  4. ZOLPIDEM                           /00914902/ [Suspect]
     Active Substance: ZOLPIDEM\ZOLPIDEM TARTRATE
     Indication: SUICIDE ATTEMPT
     Dosage: 10 MG (200 MG (20 X 10 MG))
     Route: 048

REACTIONS (26)
  - Tachycardia [Recovered/Resolved]
  - Pneumonia [Recovered/Resolved]
  - General physical health deterioration [Recovering/Resolving]
  - Electrocardiogram abnormal [Unknown]
  - Electrocardiogram ST segment depression [Recovered/Resolved]
  - Blood pressure increased [Recovering/Resolving]
  - Nodal arrhythmia [Recovered/Resolved]
  - Aggression [Recovered/Resolved]
  - Cognitive disorder [Recovered/Resolved]
  - Ventricular extrasystoles [Recovered/Resolved]
  - Ventricular extrasystoles [Recovering/Resolving]
  - Altered state of consciousness [Recovered/Resolved]
  - Laboratory test abnormal [Unknown]
  - Intentional overdose [Recovered/Resolved]
  - Ventricular arrhythmia [Recovering/Resolving]
  - Toxicity to various agents [Recovered/Resolved]
  - Electrocardiogram ST-T segment depression [Recovered/Resolved]
  - Suicide attempt [Recovered/Resolved]
  - Conduction disorder [Unknown]
  - Hypotension [Recovered/Resolved]
  - Electrocardiogram repolarisation abnormality [Unknown]
  - Myocardial infarction [Recovered/Resolved]
  - Toxicity to various agents [Recovering/Resolving]
  - Dementia [Recovered/Resolved]
  - Atrioventricular block first degree [Recovering/Resolving]
  - Restlessness [Recovering/Resolving]
